FAERS Safety Report 9862438 (Version 1)
Quarter: 2014Q1

REPORT INFORMATION
  Report Type: Spontaneous
  Country: IT (occurrence: IT)
  Receive Date: 20140203
  Receipt Date: 20140203
  Transmission Date: 20141002
  Serious: Yes (Other)
  Sender: FDA-Public Use
  Company Number: IT-TEVA-458867ISR

PATIENT
  Age: 57 Year
  Sex: Female
  Weight: 66 kg

DRUGS (4)
  1. PACLITAXEL [Suspect]
     Indication: BREAST CANCER
     Dosage: 130 MILLIGRAM DAILY;
     Route: 042
     Dates: start: 20140103, end: 20140103
  2. HERCEPTIN - 150 MG POLVERE PER CONC. PER SOLUZ. PER INFUS. ENDOVENOSA [Concomitant]
     Indication: PRODUCT USED FOR UNKNOWN INDICATION
     Dosage: POWDER FOR CONCENTRATE FOR SOLUTION FOR INFUSION
     Route: 042
     Dates: start: 20140103, end: 20140103
  3. CARDICOR - 2.5 MG COMPRESSE [Concomitant]
     Indication: HYPERTENSION
     Route: 048
  4. ANTRA - 20 MG CAPSULE RIGIDE A RILASCIO MODIFICATO [Concomitant]
     Indication: PRODUCT USED FOR UNKNOWN INDICATION
     Dosage: MODIFIED-RELEASE
     Route: 048

REACTIONS (1)
  - Dermatitis [Unknown]
